FAERS Safety Report 15645605 (Version 2)
Quarter: 2019Q1

REPORT INFORMATION
  Report Type: Report from Study
  Country: HU (occurrence: HU)
  Receive Date: 20181121
  Receipt Date: 20190104
  Transmission Date: 20190417
  Serious: Yes (Hospitalization)
  Sender: FDA-Public Use
  Company Number: HU-VERASTEM-2018-00037

PATIENT
  Sex: Female

DRUGS (9)
  1. IPI-145 [Suspect]
     Active Substance: DUVELISIB
     Indication: CHRONIC LYMPHOCYTIC LEUKAEMIA REFRACTORY
     Dosage: 15 MG, BID
     Route: 048
     Dates: start: 20170912
  2. IPI-145 [Suspect]
     Active Substance: DUVELISIB
     Dosage: 25 MG, BID
     Route: 048
     Dates: start: 20140409, end: 20170627
  3. VENTER [Concomitant]
     Indication: PRODUCT USED FOR UNKNOWN INDICATION
     Dosage: UNK
     Dates: start: 20180507
  4. ACYCLOVIR                          /00587301/ [Concomitant]
     Active Substance: ACYCLOVIR
     Indication: PRODUCT USED FOR UNKNOWN INDICATION
     Dosage: 400 MG, UNK
     Route: 048
     Dates: start: 20140411
  5. PANTOPRAZOL [Concomitant]
     Active Substance: PANTOPRAZOLE SODIUM
     Indication: PROPHYLAXIS
     Dosage: 20 MG, BID
     Dates: start: 20180213
  6. ALGOPYRIN                          /00046501/ [Concomitant]
     Active Substance: AMINOPHENAZONE
     Indication: PAIN
     Dosage: UNK, PRN
     Route: 048
  7. ALGOFLEX [Concomitant]
     Indication: PAIN
     Dosage: UNK, PRN
     Route: 048
  8. NEBIVOLOL. [Concomitant]
     Active Substance: NEBIVOLOL
     Indication: PRODUCT USED FOR UNKNOWN INDICATION
     Dosage: 5 MG, UNK
     Dates: start: 20150623
  9. COVEREX AS [Concomitant]
     Active Substance: PERINDOPRIL ARGININE
     Indication: PRODUCT USED FOR UNKNOWN INDICATION
     Dosage: 2.5 MG, UNK
     Dates: start: 20160418

REACTIONS (1)
  - Abdominal pain upper [Not Recovered/Not Resolved]

NARRATIVE: CASE EVENT DATE: 20180612
